FAERS Safety Report 9601655 (Version 2)
Quarter: 2013Q4

REPORT INFORMATION
  Report Type: Report from Study
  Country: CA (occurrence: CA)
  Receive Date: 20131007
  Receipt Date: 20131007
  Transmission Date: 20140711
  Serious: Yes (Other)
  Sender: FDA-Public Use
  Company Number: CA-JNJFOC-20130202412

PATIENT
  Age: 67 Year
  Sex: Female
  Weight: 90.72 kg

DRUGS (5)
  1. REMICADE [Suspect]
     Indication: RHEUMATOID ARTHRITIS
     Route: 042
     Dates: end: 201211
  2. TRIAMTERENE HCTZ [Concomitant]
     Indication: HYPERTENSION
     Dosage: 50-25MG
     Route: 065
  3. ZANTAC [Concomitant]
     Indication: GASTROOESOPHAGEAL REFLUX DISEASE
     Route: 065
  4. LOSARTAN [Concomitant]
     Indication: HYPERTENSION
     Route: 065
  5. PREDNISONE [Concomitant]
     Indication: GASTROOESOPHAGEAL REFLUX DISEASE
     Route: 065

REACTIONS (4)
  - Peripheral vascular disorder [Unknown]
  - Pain in extremity [Recovered/Resolved]
  - Infusion site bruising [Recovered/Resolved]
  - Oedema peripheral [Recovered/Resolved]
